FAERS Safety Report 7749451-8 (Version None)
Quarter: 2011Q3

REPORT INFORMATION
  Report Type: 
  Country: None (occurrence: None)
  Receive Date: 20110907
  Receipt Date: 20110830
  Transmission Date: 20111222
  Serious: Yes (Other)
  Sender: FDA-Public Use
  Company Number: 2011SP032078

PATIENT
  Age: 32 Year
  Sex: Female
  Weight: 63 kg

DRUGS (10)
  1. ONDANSETRON HCL [Concomitant]
  2. PANTOPRAZOLE [Concomitant]
  3. PHENYTOIN [Concomitant]
  4. TRILEPTAL [Concomitant]
  5. ATACAND [Concomitant]
  6. TEMODAL [Suspect]
     Indication: BRAIN NEOPLASM
     Dosage: 100 MG;PO
     Route: 048
  7. LEVOTHYROXINE SODIUM [Concomitant]
  8. AVASTIN [Concomitant]
  9. LEVEMIR [Concomitant]
  10. CLORANA [Concomitant]

REACTIONS (5)
  - DRUG INEFFECTIVE [None]
  - HYPERTENSION [None]
  - WRONG TECHNIQUE IN DRUG USAGE PROCESS [None]
  - CONVULSION [None]
  - DYSPHAGIA [None]
